FAERS Safety Report 12325146 (Version 2)
Quarter: 2016Q2

REPORT INFORMATION
  Report Type: Spontaneous
  Country: US (occurrence: US)
  Receive Date: 20160502
  Receipt Date: 20160522
  Transmission Date: 20160815
  Serious: Yes (Other)
  Sender: FDA-Public Use
  Company Number: US-MYLANLABS-2016M1017617

PATIENT

DRUGS (7)
  1. MODAFINIL. [Suspect]
     Active Substance: MODAFINIL
     Indication: RESTLESS LEGS SYNDROME
  2. MODAFINIL. [Suspect]
     Active Substance: MODAFINIL
     Indication: DEPRESSION
  3. MODAFINIL. [Suspect]
     Active Substance: MODAFINIL
     Indication: IMPAIRED REASONING
  4. LIPITOR [Concomitant]
     Active Substance: ATORVASTATIN CALCIUM
     Indication: BLOOD CHOLESTEROL INCREASED
     Dosage: UNK
  5. MODAFINIL. [Suspect]
     Active Substance: MODAFINIL
     Indication: SLEEP APNOEA SYNDROME
     Dosage: 200 MG, TID
     Dates: end: 201603
  6. MODAFINIL. [Suspect]
     Active Substance: MODAFINIL
     Indication: SLEEP APNOEA SYNDROME
  7. AMOXICILLIN. [Concomitant]
     Active Substance: AMOXICILLIN
     Indication: INFECTION
     Dosage: UNK
     Route: 065
     Dates: start: 20160229

REACTIONS (5)
  - Influenza like illness [Recovered/Resolved]
  - Glycosylated haemoglobin increased [Unknown]
  - Unevaluable event [Unknown]
  - Infection [Unknown]
  - Stevens-Johnson syndrome [Recovered/Resolved]

NARRATIVE: CASE EVENT DATE: 2016
